FAERS Safety Report 6851320-2 (Version None)
Quarter: 2010Q3

REPORT INFORMATION
  Report Type: 
  Country: None (occurrence: None)
  Receive Date: 20100717
  Receipt Date: 20080111
  Transmission Date: 20110219
  Serious: No
  Sender: FDA-Public Use
  Company Number: US-PFIZER INC-2008004869

PATIENT
  Age: 52 Year
  Sex: Female

DRUGS (11)
  1. CHANTIX [Suspect]
     Indication: SMOKING CESSATION THERAPY
     Dates: start: 20080101
  2. PLAVIX [Concomitant]
  3. PRILOSEC [Concomitant]
  4. COLACE [Concomitant]
  5. MULTI-VITAMINS [Concomitant]
  6. ZETIA [Concomitant]
  7. KLONOPIN [Concomitant]
  8. PSYLLIUM [Concomitant]
  9. PERCOCET [Concomitant]
  10. ADVAIR DISKUS 100/50 [Concomitant]
  11. MAXAIR [Concomitant]

REACTIONS (7)
  - CHEST DISCOMFORT [None]
  - DRUG INTOLERANCE [None]
  - DYSGEUSIA [None]
  - MALAISE [None]
  - NAUSEA [None]
  - WEIGHT INCREASED [None]
  - WHEEZING [None]
